FAERS Safety Report 9006474 (Version 1)
Quarter: 2013Q1

REPORT INFORMATION
  Report Type: Spontaneous
  Country: US (occurrence: US)
  Receive Date: 20130110
  Receipt Date: 20130110
  Transmission Date: 20140127
  Serious: No
  Sender: FDA-Public Use
  Company Number: US-PFIZER INC-2013007425

PATIENT
  Age: 32 Year
  Sex: Male

DRUGS (11)
  1. CHANTIX [Suspect]
     Indication: SMOKING CESSATION THERAPY
     Dosage: 0.5 MG, 1X/DAY
     Route: 048
     Dates: start: 20130103, end: 20130106
  2. PRAVASTATIN SODIUM [Concomitant]
     Indication: BLOOD CHOLESTEROL ABNORMAL
     Dosage: 40 MG, DAILY
  3. BACLOFEN [Concomitant]
     Indication: MUSCLE SPASMS
     Dosage: 10 MG, AS NEEDED
  4. REMERON [Concomitant]
     Indication: INSOMNIA
     Dosage: 15 MG, DAILY
  5. REMERON [Concomitant]
     Indication: PANIC ATTACK
  6. HYDROXYZINE PAMOATE [Concomitant]
     Indication: INSOMNIA
     Dosage: 15 MG, TABLET AS NEEDED ONE TO TWO TABLETS AT BEDTIME
  7. NORCO [Concomitant]
     Indication: PAIN
     Dosage: 10/325 MG, 3X/DAY
  8. LORAZEPAM [Concomitant]
     Indication: ANXIETY
     Dosage: 2 MG, 3X/DAY
  9. LORAZEPAM [Concomitant]
     Indication: PANIC ATTACK
  10. LORAZEPAM [Concomitant]
     Indication: INSOMNIA
  11. ALBUTEROL SULFATE [Concomitant]
     Indication: DYSPNOEA
     Dosage: AS NEEDED

REACTIONS (14)
  - Cold sweat [Unknown]
  - Fall [Unknown]
  - Middle insomnia [Unknown]
  - Decubitus ulcer [Not Recovered/Not Resolved]
  - Hypoaesthesia [Not Recovered/Not Resolved]
  - Paraesthesia [Not Recovered/Not Resolved]
  - Vision blurred [Unknown]
  - Abnormal dreams [Unknown]
  - Thirst [Unknown]
  - Amnesia [Unknown]
  - Dry skin [Unknown]
  - Pyrexia [Unknown]
  - Feeling jittery [Unknown]
  - Pain [Unknown]
